FAERS Safety Report 8006480-7 (Version None)
Quarter: 2011Q4

REPORT INFORMATION
  Report Type: 
  Country: None (occurrence: None)
  Receive Date: 20111226
  Receipt Date: 20111215
  Transmission Date: 20120403
  Serious: Yes (Other)
  Sender: FDA-Public Use
  Company Number: PHEH2011US07409

PATIENT
  Sex: Male

DRUGS (6)
  1. ARNICA [Concomitant]
  2. CARNITOR [Concomitant]
  3. MIRALAX [Concomitant]
  4. DEPAKOTE [Concomitant]
  5. TENEX [Concomitant]
  6. AFINITOR [Suspect]
     Indication: TUBEROUS SCLEROSIS
     Dosage: 7.5 MG, DAILY
     Route: 048
     Dates: start: 20110103

REACTIONS (2)
  - INGROWING NAIL [None]
  - PAIN [None]
